FAERS Safety Report 6025417-3 (Version None)
Quarter: 2008Q4

REPORT INFORMATION
  Report Type: 
  Country: None (occurrence: None)
  Receive Date: 20081229
  Receipt Date: 20081229
  Transmission Date: 20090506
  Serious: Yes (Life-Threatening, Hospitalization)
  Sender: FDA-Public Use
  Company Number: None

PATIENT
  Age: 70 Year
  Sex: Female
  Weight: 68.0396 kg

DRUGS (2)
  1. EVISTA [Suspect]
     Indication: BREAST DISORDER
     Dates: start: 20040715, end: 20080815
  2. EVISTA [Suspect]
     Indication: OSTEOPENIA
     Dates: start: 20040715, end: 20080815

REACTIONS (1)
  - PULMONARY THROMBOSIS [None]
